FAERS Safety Report 6833759-4 (Version None)
Quarter: 2010Q3

REPORT INFORMATION
  Report Type: 
  Country: None (occurrence: None)
  Receive Date: 20100712
  Receipt Date: 20070330
  Transmission Date: 20110219
  Serious: No
  Sender: FDA-Public Use
  Company Number: US-PFIZER INC-2007027355

PATIENT
  Sex: Female
  Weight: 63.5 kg

DRUGS (6)
  1. CHANTIX [Suspect]
     Indication: SMOKING CESSATION THERAPY
     Dates: start: 20070323, end: 20070329
  2. WARFARIN SODIUM [Concomitant]
     Indication: SURGERY
  3. LOPRESSOR [Concomitant]
     Indication: HYPERTENSION
  4. BLACK COHOSH [Concomitant]
     Indication: MENOPAUSE
  5. IRON [Concomitant]
  6. NEURONTIN [Concomitant]

REACTIONS (2)
  - PRURITUS [None]
  - RASH PAPULAR [None]
